FAERS Safety Report 15352542 (Version 2)
Quarter: 2018Q4

REPORT INFORMATION
  Report Type: Spontaneous
  Country: PL (occurrence: PL)
  Receive Date: 20180905
  Receipt Date: 20181025
  Transmission Date: 20190204
  Serious: Yes (Other)
  Sender: FDA-Public Use
  Company Number: PHHY2018PL088437

PATIENT
  Age: 65 Year
  Sex: Female

DRUGS (19)
  1. ACETYLSALICYLIC ACID [Interacting]
     Active Substance: ASPIRIN
     Indication: HYPERLIPIDAEMIA
  2. PROPAFENONE HYDROCHLORIDE. [Interacting]
     Active Substance: PROPAFENONE HYDROCHLORIDE
     Indication: ARRHYTHMIA SUPRAVENTRICULAR
  3. LEVOMEPROMAZINE [Interacting]
     Active Substance: LEVOMEPROMAZINE
     Indication: DEPRESSION
     Dosage: 50 MG, QD AT BEDTIME
     Route: 065
  4. CANDESARTAN CILEXETIL+HYDROCHLOROTHIAZIDE [Interacting]
     Active Substance: CANDESARTAN CILEXETIL\HYDROCHLOROTHIAZIDE
     Indication: HYPERTENSION
     Dosage: (16 MG OF CANDESARTAN + 12,5 MG OF HYDROCHLOROTHIAZIDE), QD
     Route: 065
  5. BUSPIRONE HYDROCHLORIDE. [Interacting]
     Active Substance: BUSPIRONE HYDROCHLORIDE
     Indication: DEPRESSION
     Dosage: 10 MG, QD
     Route: 065
  6. ACETYLSALICYLIC ACID [Interacting]
     Active Substance: ASPIRIN
     Indication: HYPOTENSION
     Dosage: 75 MG, QD
     Route: 065
  7. SERTRALINE [Interacting]
     Active Substance: SERTRALINE HYDROCHLORIDE
     Indication: DEPRESSION
     Dosage: 100 MG, QD IN THE MORNING
     Route: 065
  8. ACETYLSALICYLIC ACID [Interacting]
     Active Substance: ASPIRIN
     Indication: ARRHYTHMIA
  9. SULPIRIDE [Interacting]
     Active Substance: SULPIRIDE
     Indication: DEPRESSION
     Dosage: 150 MG, QD
     Route: 065
  10. PROPAFENONE HYDROCHLORIDE. [Interacting]
     Active Substance: PROPAFENONE HYDROCHLORIDE
     Indication: ARRHYTHMIA
     Dosage: 450 MG, QD
     Route: 065
  11. AMITRIPTYLINE HYDROCHLORIDE. [Interacting]
     Active Substance: AMITRIPTYLINE HYDROCHLORIDE
     Indication: DEPRESSION
     Dosage: 225 MG, QD
     Route: 065
  12. LANSOPRAZOLE. [Interacting]
     Active Substance: LANSOPRAZOLE
     Indication: HYPERLIPIDAEMIA
     Dosage: 15 MG, QD
     Route: 065
  13. AMLODIPINE [Interacting]
     Active Substance: AMLODIPINE BESYLATE
     Indication: HYPERTENSION
     Dosage: 5 MG, QD
     Route: 065
  14. ATORVASTATIN [Interacting]
     Active Substance: ATORVASTATIN
     Indication: HYPERTENSION
  15. PERAZINE DIMALONATE [Interacting]
     Active Substance: PERAZINE DIMALONATE
     Indication: DEPRESSION
     Dosage: 75 MG, QD
     Route: 065
  16. VINPOCETINE [Interacting]
     Active Substance: VINPOCETINE
     Indication: DEPRESSION
     Dosage: 15 MG, QD
     Route: 065
  17. LAMOTRIGINE. [Interacting]
     Active Substance: LAMOTRIGINE
     Indication: DEPRESSION
     Dosage: 150 MG, QD
     Route: 065
  18. AMLODIPINE [Interacting]
     Active Substance: AMLODIPINE BESYLATE
     Indication: ARRHYTHMIA SUPRAVENTRICULAR
  19. ATORVASTATIN [Suspect]
     Active Substance: ATORVASTATIN
     Indication: HYPERLIPIDAEMIA
     Dosage: 20 MG, QD
     Route: 065

REACTIONS (26)
  - Cognitive disorder [Recovering/Resolving]
  - Drug ineffective [Unknown]
  - Insomnia [Recovering/Resolving]
  - Fall [Recovered/Resolved]
  - Disturbance in attention [Recovering/Resolving]
  - Mental disorder [Recovering/Resolving]
  - Fatigue [Recovering/Resolving]
  - Somnolence [Recovering/Resolving]
  - Amnesia [Recovering/Resolving]
  - Drug interaction [Recovering/Resolving]
  - Anxiety [Recovered/Resolved]
  - Depression [Recovering/Resolving]
  - Extrapyramidal disorder [Recovered/Resolved]
  - Balance disorder [Recovering/Resolving]
  - Dizziness [Recovered/Resolved]
  - Psychomotor retardation [Recovering/Resolving]
  - Anhedonia [Recovering/Resolving]
  - Nervous system disorder [Recovered/Resolved]
  - Emotional disorder [Recovering/Resolving]
  - Sleep disorder [Recovering/Resolving]
  - Overweight [Unknown]
  - Depressed mood [Recovering/Resolving]
  - Tension [Recovering/Resolving]
  - Flat affect [Recovering/Resolving]
  - Sleep deficit [Recovered/Resolved]
  - Bradykinesia [Recovered/Resolved]
